FAERS Safety Report 14526309 (Version 1)
Quarter: 2018Q1

REPORT INFORMATION
  Report Type: Spontaneous
  Country: US (occurrence: US)
  Receive Date: 20180212
  Receipt Date: 20180212
  Transmission Date: 20180509
  Serious: Yes (Other)
  Sender: FDA-Public Use
  Company Number: None

PATIENT
  Age: 58 Year

DRUGS (4)
  1. FINASTERIDE. [Concomitant]
     Active Substance: FINASTERIDE
  2. IRON [Concomitant]
     Active Substance: IRON
  3. CIMZIA [Suspect]
     Active Substance: CERTOLIZUMAB PEGOL
     Indication: CROHN^S DISEASE
     Route: 058
     Dates: start: 20150829
  4. PRILOSEC [Concomitant]
     Active Substance: OMEPRAZOLE MAGNESIUM

REACTIONS (2)
  - Nasopharyngitis [None]
  - Drug dose omission [None]

NARRATIVE: CASE EVENT DATE: 20180205
